FAERS Safety Report 4359045-2 (Version None)
Quarter: 2004Q2

REPORT INFORMATION
  Report Type: 
  Country: None (occurrence: None)
  Receive Date: 20040517
  Receipt Date: 20040513
  Transmission Date: 20050107
  Serious: Yes (Other)
  Sender: FDA-Public Use
  Company Number: FR-GLAXOSMITHKLINE-B0332830A

PATIENT
  Age: 71 Year
  Sex: Male

DRUGS (8)
  1. ZINNAT [Suspect]
     Indication: INFECTION PROPHYLAXIS
     Route: 042
     Dates: start: 20031201, end: 20031201
  2. ACETAMINOPHEN [Suspect]
     Route: 065
     Dates: start: 20031201, end: 20031201
  3. CETIRIZINE HCL [Suspect]
     Route: 065
     Dates: start: 20031201, end: 20031201
  4. DOLOSAL [Suspect]
     Route: 065
     Dates: start: 20031201, end: 20031201
  5. ANESTHETIC [Suspect]
     Route: 065
     Dates: start: 20031201, end: 20031201
  6. TAHOR [Concomitant]
     Indication: HYPERCHOLESTEROLAEMIA
     Route: 048
     Dates: start: 20000101
  7. FLECAINE [Concomitant]
     Indication: ARRHYTHMIA
     Route: 048
  8. MULTIVITAMIN [Concomitant]
     Route: 065
     Dates: start: 20031201, end: 20031201

REACTIONS (1)
  - DEAFNESS BILATERAL [None]
